FAERS Safety Report 9201642 (Version 1)
Quarter: 2013Q2

REPORT INFORMATION
  Report Type: Spontaneous
  Country: IT (occurrence: IT)
  Receive Date: 20130401
  Receipt Date: 20130401
  Transmission Date: 20140414
  Serious: Yes (Hospitalization)
  Sender: FDA-Public Use
  Company Number: PHHY2013IT028922

PATIENT
  Sex: Female

DRUGS (3)
  1. TEGRETOL [Suspect]
     Dosage: 750 MG, DAILY
     Route: 048
     Dates: start: 20120913
  2. TEGRETOL [Suspect]
     Dosage: 700 MG, DAILY
     Route: 048
     Dates: start: 20130214
  3. TEGRETOL [Suspect]
     Dosage: 650 MG, DAILY
     Route: 048

REACTIONS (3)
  - Vertigo [Unknown]
  - Visual impairment [Unknown]
  - Confusional state [Unknown]
